FAERS Safety Report 9228414 (Version 1)
Quarter: 2013Q2

REPORT INFORMATION
  Report Type: Report from Study
  Country: US (occurrence: US)
  Receive Date: 20130412
  Receipt Date: 20130412
  Transmission Date: 20140414
  Serious: Yes (Hospitalization)
  Sender: FDA-Public Use
  Company Number: US-ABBOTT-13P-163-1072119-00

PATIENT
  Age: 77 Year
  Sex: Male
  Weight: 68.55 kg

DRUGS (11)
  1. HUMIRA [Suspect]
     Indication: RHEUMATOID ARTHRITIS
     Dates: start: 2007
  2. ALBUTEROL [Concomitant]
     Indication: CHRONIC OBSTRUCTIVE PULMONARY DISEASE
  3. ATENOLOL [Concomitant]
     Indication: HYPERTENSION
  4. FLUTICASONE [Concomitant]
     Indication: HYPERSENSITIVITY
  5. FOLIC ACID [Concomitant]
     Indication: VITAMIN SUPPLEMENTATION
  6. MIRTAZAPINE [Concomitant]
     Indication: DEPRESSION
  7. OMEPRAZOLE [Concomitant]
     Indication: GASTROOESOPHAGEAL REFLUX DISEASE
  8. OXYCODONE [Concomitant]
     Indication: PAIN
  9. TERAZOSIN [Concomitant]
     Indication: PROSTATIC DISORDER
  10. ZOLEDRONIC ACID [Concomitant]
     Indication: OSTEOPOROSIS
  11. FIBER [Concomitant]
     Indication: SUPPLEMENTATION THERAPY

REACTIONS (3)
  - Oxygen saturation decreased [Recovered/Resolved]
  - Pneumonia [Recovered/Resolved]
  - Sinus disorder [Recovered/Resolved]
